FAERS Safety Report 9135843 (Version 1)
Quarter: 2013Q1

REPORT INFORMATION
  Report Type: Spontaneous
  Country: JP (occurrence: JP)
  Receive Date: 20130304
  Receipt Date: 20130304
  Transmission Date: 20140127
  Serious: Yes (Other)
  Sender: FDA-Public Use
  Company Number: JP-PFIZER INC-2013073875

PATIENT
  Sex: Male

DRUGS (4)
  1. LYRICA [Suspect]
     Dosage: 75 MG, 2X/DAY
     Route: 048
     Dates: start: 20120902
  2. LYRICA [Suspect]
     Dosage: 300 MG/ DAY
     Route: 048
  3. LYRICA [Suspect]
     Dosage: 150MG/ DAY
  4. LYRICA [Suspect]
     Dosage: 2 TABLETS/ DAY

REACTIONS (11)
  - Confusional state [Unknown]
  - Fall [Unknown]
  - Injury [Unknown]
  - Asthenia [Unknown]
  - Insomnia [Unknown]
  - Dizziness [Unknown]
  - Somnolence [Unknown]
  - Constipation [Unknown]
  - Fatigue [Unknown]
  - Dysgeusia [Unknown]
  - Drug ineffective [Unknown]
